FAERS Safety Report 7215576-9 (Version None)
Quarter: 2011Q1

REPORT INFORMATION
  Report Type: 
  Country: None (occurrence: None)
  Receive Date: 20110105
  Receipt Date: 20110105
  Transmission Date: 20110831
  Serious: Yes (Life-Threatening, Other)
  Sender: FDA-Public Use
  Company Number: None

PATIENT

DRUGS (1)
  1. ANDROGEL [Suspect]

REACTIONS (2)
  - ACCIDENTAL EXPOSURE [None]
  - BREAST CANCER FEMALE [None]
